FAERS Safety Report 25753300 (Version 1)
Quarter: 2025Q3

REPORT INFORMATION
  Report Type: Report from Study
  Country: BR (occurrence: BR)
  Receive Date: 20250903
  Receipt Date: 20250903
  Transmission Date: 20251020
  Serious: Yes (Hospitalization, Other)
  Sender: ABBVIE
  Company Number: BR-ABBVIE-6438612

PATIENT
  Age: 83 Year
  Sex: Male

DRUGS (1)
  1. SKYRIZI [Suspect]
     Active Substance: RISANKIZUMAB-RZAA
     Indication: Psoriasis
     Route: 058
     Dates: start: 20210803

REACTIONS (8)
  - Gait disturbance [Not Recovered/Not Resolved]
  - Cerebrovascular accident [Unknown]
  - Urinary incontinence [Unknown]
  - Dizziness [Unknown]
  - Prostatic disorder [Not Recovered/Not Resolved]
  - Head discomfort [Unknown]
  - Limb discomfort [Unknown]
  - Diabetes mellitus [Unknown]

NARRATIVE: CASE EVENT DATE: 20230101
